FAERS Safety Report 5966092-3 (Version None)
Quarter: 2008Q4

REPORT INFORMATION
  Report Type: 
  Country: None (occurrence: None)
  Receive Date: 20081125
  Receipt Date: 20081113
  Transmission Date: 20090506
  Serious: No
  Sender: FDA-Public Use
  Company Number: US-ELI_LILLY_AND_COMPANY-US200811003116

PATIENT
  Age: 65 Year
  Sex: Male

DRUGS (4)
  1. CIALIS [Suspect]
     Dosage: 5 MG, DAILY (1/D)
     Route: 065
  2. AVALIDE [Concomitant]
     Dosage: UNK, UNKNOWN
     Route: 065
  3. AVODART [Concomitant]
     Dosage: UNK, UNKNOWN
     Route: 065
  4. LIPITOR [Concomitant]
     Dosage: UNK, UNKNOWN
     Route: 065

REACTIONS (6)
  - DIZZINESS [None]
  - HEADACHE [None]
  - HYPERHIDROSIS [None]
  - PHOTOPSIA [None]
  - VERTIGO [None]
  - VISION BLURRED [None]
